FAERS Safety Report 6127438-9 (Version None)
Quarter: 2009Q1

REPORT INFORMATION
  Report Type: 
  Country: None (occurrence: None)
  Receive Date: 20090319
  Receipt Date: 20090305
  Transmission Date: 20090719
  Serious: Yes (Hospitalization)
  Sender: FDA-Public Use
  Company Number: 02100-JPN-06-0394

PATIENT
  Age: 72 Year
  Sex: Female

DRUGS (8)
  1. PLAVIX [Suspect]
     Indication: CEREBRAL INFARCTION
     Dosage: 75 MG, DAILY DOSE ORAL
     Route: 048
     Dates: start: 20051011, end: 20060510
  2. ATORVASTATIN CALCIUM [Concomitant]
  3. DOXAZOCIN (DOXAZOCIN) [Concomitant]
  4. ANHYDROUS THEOPHYLLINE (ANHYDROUS THEOPHYLLINE) [Concomitant]
  5. ERDOSTEINE (ERDOSTEINE) [Concomitant]
  6. TORSEMIDE [Concomitant]
  7. UNSPECIFIED DRUG (UNSPECIFIED DRUG) [Concomitant]
  8. HUMAN INSULIN (HUMAN INSULIN) [Concomitant]

REACTIONS (2)
  - CATARACT OPERATION [None]
  - RETINAL OPERATION [None]
